FAERS Safety Report 24392848 (Version 1)
Quarter: 2024Q4

REPORT INFORMATION
  Report Type: Spontaneous
  Country: GB (occurrence: GB)
  Receive Date: 20241003
  Receipt Date: 20241003
  Transmission Date: 20250115
  Serious: Yes (Other)
  Sender: TEVA
  Company Number: GB-MHRA-TPP25919899C6727255YC1727112889122

PATIENT
  Age: 59 Year
  Sex: Female
  Weight: 94 kg

DRUGS (6)
  1. FAMOTIDINE [Suspect]
     Active Substance: FAMOTIDINE
     Indication: Ill-defined disorder
     Dosage: TAKE ONE DAILY. CAN INCREASE TO ONE TWICE DAILY... 20MG TABLETS
     Route: 065
     Dates: start: 20240904
  2. RANITIDINE HYDROCHLORIDE [Concomitant]
     Active Substance: RANITIDINE HYDROCHLORIDE
     Indication: Ill-defined disorder
     Dosage: 2X5ML SPOON 4 TIMES/DAY
     Dates: start: 20240923
  3. CETIRIZINE [Concomitant]
     Active Substance: CETIRIZINE HYDROCHLORIDE
     Indication: Ill-defined disorder
     Dosage: TAKE ONE DAILY
     Dates: start: 20240801, end: 20240831
  4. ZERODERM [Concomitant]
     Indication: Ill-defined disorder
     Dosage: USE AS DIRECTED
     Dates: start: 20240801, end: 20240831
  5. POTASSIUM BICARBONATE\SODIUM ALGINATE [Concomitant]
     Active Substance: POTASSIUM BICARBONATE\SODIUM ALGINATE
     Indication: Ill-defined disorder
     Dosage: 5ML - 10ML 4 TIMES/DAY
     Dates: start: 20240801, end: 20240831
  6. FLUCLOXACILLIN [Concomitant]
     Active Substance: FLUCLOXACILLIN
     Indication: Ill-defined disorder
     Dosage: TAKE ONE 4 TIMES/DAY
     Dates: start: 20240801, end: 20240808

REACTIONS (3)
  - Swelling of eyelid [Recovered/Resolved]
  - Swelling face [Recovered/Resolved]
  - Urticaria [Unknown]
